FAERS Safety Report 4389829-0 (Version None)
Quarter: 2004Q2

REPORT INFORMATION
  Report Type: 
  Country: None (occurrence: None)
  Receive Date: 20040628
  Receipt Date: 20040615
  Transmission Date: 20050107
  Serious: Yes (Other)
  Sender: FDA-Public Use
  Company Number: 2004040176

PATIENT

DRUGS (1)
  1. NEURONTIN [Suspect]
     Indication: ILL-DEFINED DISORDER
     Dosage: DAILY

REACTIONS (5)
  - GAIT DISTURBANCE [None]
  - MENTAL IMPAIRMENT [None]
  - MIOSIS [None]
  - PUPILLARY REFLEX IMPAIRED [None]
  - TREMOR [None]
